FAERS Safety Report 5814272-X (Version None)
Quarter: 2008Q3

REPORT INFORMATION
  Report Type: 
  Country: None (occurrence: None)
  Receive Date: 20080715
  Receipt Date: 20080709
  Transmission Date: 20090109
  Serious: Yes (Hospitalization)
  Sender: FDA-Public Use
  Company Number: US023950

PATIENT
  Age: 74 Year
  Sex: Female
  Weight: 68.4932 kg

DRUGS (12)
  1. TREANDA [Suspect]
     Indication: CHRONIC LYMPHOCYTIC LEUKAEMIA
     Dosage: 176 MG 100 MG/M^2 QMON INTRAVENOUS
     Route: 042
     Dates: start: 20080529, end: 20080530
  2. ALLOPURINOL [Suspect]
     Indication: CHRONIC LYMPHOCYTIC LEUKAEMIA
     Dosage: 100 MG QD ORAL
     Route: 048
     Dates: start: 20080523, end: 20080616
  3. ALLOPURINOL [Suspect]
     Indication: PROPHYLAXIS
     Dosage: 100 MG QD ORAL
     Route: 048
     Dates: start: 20080523, end: 20080616
  4. AMOXICILLIN [Suspect]
     Indication: OROPHARYNGEAL PAIN
     Dosage: ORAL
     Route: 048
     Dates: start: 20080601, end: 20080601
  5. DICLOFENAC SODIUM [Suspect]
     Dosage: 75 MG BID
  6. TRIAMTERENE AND HYDROCHLOROTHIAZIDE [Suspect]
     Dosage: 37.5/25 QD
  7. MINOCYCLINE HCL [Concomitant]
  8. ZETIA [Concomitant]
  9. VERAPAMIL [Concomitant]
  10. AMBIEN [Concomitant]
  11. TYLENOL (CAPLET) [Concomitant]
  12. POTASSIUM CHLORIDE [Concomitant]

REACTIONS (9)
  - DRUG ERUPTION [None]
  - DRUG HYPERSENSITIVITY [None]
  - DYSPHAGIA [None]
  - FLUID INTAKE REDUCED [None]
  - HYPOPHAGIA [None]
  - ORAL CANDIDIASIS [None]
  - OROPHARYNGEAL PAIN [None]
  - STEVENS-JOHNSON SYNDROME [None]
  - STOMATITIS [None]
